FAERS Safety Report 20854751 (Version 2)
Quarter: 2022Q2

REPORT INFORMATION
  Report Type: Spontaneous
  Country: US (occurrence: US)
  Receive Date: 20220520
  Receipt Date: 20220615
  Transmission Date: 20220720
  Serious: No
  Sender: FDA-Public Use
  Company Number: US-PFIZER INC-202200738558

PATIENT
  Age: 62 Year
  Sex: Female

DRUGS (1)
  1. IBRANCE [Suspect]
     Active Substance: PALBOCICLIB
     Indication: Breast cancer female
     Dosage: 125 MG
     Dates: start: 20220216

REACTIONS (4)
  - Fatigue [Unknown]
  - Insomnia [Unknown]
  - Dry skin [Unknown]
  - Headache [Unknown]

NARRATIVE: CASE EVENT DATE: 20220101
